FAERS Safety Report 8842807 (Version 2)
Quarter: 2014Q2

REPORT INFORMATION
  Report Type: Spontaneous
  Country: US (occurrence: US)
  Receive Date: 20121016
  Receipt Date: 20131024
  Transmission Date: 20141212
  Serious: No
  Sender: FDA-Public Use
  Company Number: US-PFIZER INC-2012251739

PATIENT
  Age: 73 Year
  Sex: Female
  Weight: 104.31 kg

DRUGS (2)
  1. DEPO-MEDROL [Suspect]
     Indication: BACK PAIN
     Dosage: 8 SHOTS
     Dates: start: 20120924
  2. AMLODIPINE [Concomitant]
     Indication: HYPERTENSION
     Dosage: 2.5 MG DAILY

REACTIONS (5)
  - Hyperhidrosis [Not Recovered/Not Resolved]
  - Dyspepsia [Unknown]
  - Middle insomnia [Unknown]
  - Feeling abnormal [Unknown]
  - Feeling abnormal [Not Recovered/Not Resolved]
